FAERS Safety Report 4596093-1 (Version None)
Quarter: 2005Q1

REPORT INFORMATION
  Report Type: 
  Country: None (occurrence: None)
  Receive Date: 20050228
  Receipt Date: 20050228
  Transmission Date: 20050727
  Serious: Yes (Hospitalization)
  Sender: FDA-Public Use
  Company Number: None

PATIENT
  Sex: Female
  Weight: 95.2554 kg

DRUGS (1)
  1. BIAXIN XL [Suspect]
     Indication: BRONCHITIS ACUTE
     Dosage: 500 MG PO DAILY
     Route: 048
     Dates: start: 20050111, end: 20050113

REACTIONS (1)
  - STEVENS-JOHNSON SYNDROME [None]
